FAERS Safety Report 7719546-3 (Version None)
Quarter: 2011Q3

REPORT INFORMATION
  Report Type: 
  Country: None (occurrence: None)
  Receive Date: 20110830
  Receipt Date: 20110824
  Transmission Date: 20111222
  Serious: Yes (Hospitalization)
  Sender: FDA-Public Use
  Company Number: AT-B.I. PHARMACEUTICALS,INC./RIDGEFIELD-2011-AP-00440AP

PATIENT
  Age: 20 Month
  Sex: Male

DRUGS (1)
  1. PRAMIPEXOLE DIHYDROCHLORIDE [Suspect]
     Indication: ACCIDENTAL OVERDOSE
     Dosage: 1.5DF DOSAGE FORM, 1 SEPARATE DOSE, 1 UNIT TOTAL
     Route: 048
     Dates: start: 20110524, end: 20110524

REACTIONS (3)
  - SOMNOLENCE [None]
  - ACCIDENTAL OVERDOSE [None]
  - DIZZINESS [None]
